FAERS Safety Report 24687370 (Version 1)
Quarter: 2024Q4

REPORT INFORMATION
  Report Type: Spontaneous
  Country: IT (occurrence: IT)
  Receive Date: 20241202
  Receipt Date: 20241202
  Transmission Date: 20250115
  Serious: Yes (Hospitalization)
  Sender: SK LIFE SCIENCE
  Company Number: IT-SK LIFE SCIENCE, INC.-SKPVG-2024-002725

PATIENT

DRUGS (5)
  1. XCOPRI [Suspect]
     Active Substance: CENOBAMATE
     Indication: Partial seizures
     Dosage: UNK
     Route: 065
  2. XCOPRI [Suspect]
     Active Substance: CENOBAMATE
     Dosage: 150 MILLIGRAM, QD
     Route: 065
  3. XCOPRI [Suspect]
     Active Substance: CENOBAMATE
     Dosage: 100 MILLIGRAM, QD
     Route: 065
  4. VALPROIC ACID [Suspect]
     Active Substance: VALPROIC ACID
     Indication: Partial seizures
     Dosage: 1500 MILLIGRAM, QD
     Route: 065
  5. BRIVARACETAM [Concomitant]
     Active Substance: BRIVARACETAM
     Indication: Seizure
     Dosage: 200 MILLIGRAM, QD
     Route: 065

REACTIONS (5)
  - Encephalopathy [Recovered/Resolved]
  - Drug-induced liver injury [Recovered/Resolved]
  - Hepatic steatosis [Recovered/Resolved]
  - Hepatomegaly [Recovered/Resolved]
  - Hyperammonaemia [Recovered/Resolved]
